FAERS Safety Report 11222832 (Version 2)
Quarter: 2015Q3

REPORT INFORMATION
  Report Type: Report from Study
  Country: US (occurrence: US)
  Receive Date: 20150626
  Receipt Date: 20150714
  Transmission Date: 20151125
  Serious: Yes (Death, Hospitalization)
  Sender: FDA-Public Use
  Company Number: US-ACTELION-A-NJ2014-105906

PATIENT
  Age: 48 Year
  Sex: Female

DRUGS (25)
  1. GABAPENTIN. [Concomitant]
     Active Substance: GABAPENTIN
     Dosage: 300 MG, BID
     Dates: start: 20141019
  2. ALBUTEROL. [Concomitant]
     Active Substance: ALBUTEROL
     Indication: CHRONIC OBSTRUCTIVE PULMONARY DISEASE
     Dosage: Q4H PRN
     Dates: start: 20140313
  3. BUSPIRONE [Concomitant]
     Active Substance: BUSPIRONE HYDROCHLORIDE
     Dosage: 10 MG, BID
     Route: 048
  4. TYVASO [Suspect]
     Active Substance: TREPROSTINIL
     Dosage: 18-54 ?G, QID
     Route: 055
     Dates: start: 20140604
  5. SPIRIVA [Concomitant]
     Active Substance: TIOTROPIUM BROMIDE MONOHYDRATE
     Indication: ASTHMA
     Dosage: 18 MCG, QD
  6. LASIX [Concomitant]
     Active Substance: FUROSEMIDE
     Dosage: 80MG IN AM, 40MG IN PM
     Route: 048
     Dates: end: 20140602
  7. LYRICA [Concomitant]
     Active Substance: PREGABALIN
     Dosage: 100 MG, BID
     Route: 048
  8. POTASSIUM CHLORIDE. [Concomitant]
     Active Substance: POTASSIUM CHLORIDE
     Dosage: 10 MEQ, TID
     Route: 048
  9. SYMBICORT [Concomitant]
     Active Substance: BUDESONIDE\FORMOTEROL FUMARATE DIHYDRATE
     Indication: ASTHMA
     Dosage: 2 PUFF, BID
  10. MACITENTAN [Suspect]
     Active Substance: MACITENTAN
     Indication: PULMONARY ARTERIAL HYPERTENSION
     Dosage: 10 MG, QD
     Route: 048
     Dates: start: 20140512, end: 20150615
  11. ORENCIA [Concomitant]
     Active Substance: ABATACEPT
     Dosage: 125 MG, UNK
     Route: 058
  12. ROPINIROLE. [Concomitant]
     Active Substance: ROPINIROLE
     Dosage: 1 MG, QD
     Route: 048
  13. TYVASO [Suspect]
     Active Substance: TREPROSTINIL
     Indication: PRODUCT USED FOR UNKNOWN INDICATION
     Dosage: 12 PUFFS, QID
     Route: 055
  14. TYVASO [Suspect]
     Active Substance: TREPROSTINIL
     Dosage: 72 ?G, QID
     Route: 055
  15. ADCIRCA [Suspect]
     Active Substance: TADALAFIL
     Indication: PRODUCT USED FOR UNKNOWN INDICATION
     Dosage: 20 MG, QD
     Route: 065
     Dates: start: 20140922
  16. PREDNISONE. [Concomitant]
     Active Substance: PREDNISONE
     Dosage: 5 MG, QD
     Route: 048
  17. TYVASO [Suspect]
     Active Substance: TREPROSTINIL
     Dosage: 18-54 ?G, QID
     Route: 055
     Dates: start: 20140604
  18. ZANTAC [Concomitant]
     Active Substance: RANITIDINE HYDROCHLORIDE
     Indication: GASTROOESOPHAGEAL REFLUX DISEASE
     Dosage: 1 TABLET, BID
     Dates: start: 20140811
  19. LASIX [Concomitant]
     Active Substance: FUROSEMIDE
     Dosage: 40 MG, BID
     Route: 048
  20. LABETALOL [Concomitant]
     Active Substance: LABETALOL\LABETALOL HYDROCHLORIDE
     Dosage: 100 MG, TID
     Route: 048
  21. CHLORTHALIDONE. [Concomitant]
     Active Substance: CHLORTHALIDONE
     Dosage: 25 MG, BID
     Route: 048
  22. COUMADIN [Concomitant]
     Active Substance: WARFARIN SODIUM
  23. TYVASO [Suspect]
     Active Substance: TREPROSTINIL
     Dosage: 18-54 ?G, QID
     Route: 055
     Dates: start: 20140604
  24. NIFEDIPINE. [Concomitant]
     Active Substance: NIFEDIPINE
     Dosage: 30 MG, QD
     Route: 048
  25. OXYGEN. [Concomitant]
     Active Substance: OXYGEN
     Dosage: 8 L/MIN, UNK

REACTIONS (12)
  - Pulmonary arterial hypertension [Fatal]
  - Cough [Unknown]
  - Dyspnoea [Unknown]
  - Asthenia [Unknown]
  - Lung disorder [Unknown]
  - Cardiac failure [Recovering/Resolving]
  - Treatment noncompliance [Unknown]
  - Disease progression [Fatal]
  - Social problem [Unknown]
  - Hypertension [Recovering/Resolving]
  - Pain [Unknown]
  - Fluid overload [Recovering/Resolving]

NARRATIVE: CASE EVENT DATE: 20140901
